FAERS Safety Report 9624666 (Version 2)
Quarter: 2013Q4

REPORT INFORMATION
  Report Type: Report from Study
  Country: JP (occurrence: JP)
  Receive Date: 20131015
  Receipt Date: 20131015
  Transmission Date: 20140711
  Serious: Yes (Hospitalization, Other)
  Sender: FDA-Public Use
  Company Number: JP-SA-THYM-1003880

PATIENT
  Age: 63 Year
  Sex: Female
  Weight: 36 kg

DRUGS (6)
  1. THYMOGLOBULINE [Suspect]
     Indication: BONE MARROW CONDITIONING REGIMEN
     Dosage: 100 MG, QD
     Route: 065
     Dates: start: 20120401, end: 20120402
  2. BUSULFEX [Suspect]
     Indication: MYELODYSPLASTIC SYNDROME
     Dosage: UNK
     Route: 065
     Dates: start: 20120403, end: 20120407
  3. PROGRAF [Suspect]
     Indication: PROPHYLAXIS AGAINST GRAFT VERSUS HOST DISEASE
     Dosage: UNK
     Route: 065
     Dates: start: 20120408
  4. FLUDARA [Concomitant]
     Indication: MYELODYSPLASTIC SYNDROME
     Dosage: UNK
     Route: 065
     Dates: start: 20120403, end: 20120407
  5. METHOTREXATE [Concomitant]
     Indication: PROPHYLAXIS AGAINST GRAFT VERSUS HOST DISEASE
     Dosage: UNK
     Route: 065
     Dates: start: 20120410, end: 20120415
  6. FUNGUARD [Concomitant]
     Indication: ANTIFUNGAL PROPHYLAXIS
     Dosage: UNK
     Route: 065
     Dates: start: 20120408, end: 20120430

REACTIONS (4)
  - Acute graft versus host disease [Unknown]
  - Neutropenia [Recovered/Resolved]
  - Cytomegalovirus infection [Recovering/Resolving]
  - Febrile neutropenia [Recovering/Resolving]
